FAERS Safety Report 7666558-4 (Version None)
Quarter: 2011Q3

REPORT INFORMATION
  Report Type: 
  Country: None (occurrence: None)
  Receive Date: 20110806
  Receipt Date: 20110509
  Transmission Date: 20111222
  Serious: No
  Sender: FDA-Public Use
  Company Number: US-ABBOTT-11P-163-0724678-00

PATIENT
  Sex: Male
  Weight: 96.702 kg

DRUGS (8)
  1. ASPIRIN [Concomitant]
     Indication: PROPHYLAXIS
  2. LISINOPRIL [Concomitant]
     Indication: HYPERTENSION
  3. FISH OIL [Concomitant]
     Indication: SUPPLEMENTATION THERAPY
  4. NIASPAN [Suspect]
     Dosage: 1000 MG DAILY
     Dates: start: 20110401, end: 20110507
  5. CRESTOR [Concomitant]
     Indication: BLOOD CHOLESTEROL INCREASED
  6. MULTI-VITAMIN [Concomitant]
     Indication: VITAMIN SUPPLEMENTATION
  7. NIASPAN [Suspect]
     Indication: BLOOD CHOLESTEROL INCREASED
     Dates: start: 20110508
  8. NIASPAN [Suspect]
     Dosage: 500 MG DAILY
     Dates: start: 20110301, end: 20110401

REACTIONS (1)
  - FLUSHING [None]
